FAERS Safety Report 16171096 (Version 4)
Quarter: 2019Q2

REPORT INFORMATION
  Report Type: Report from Study
  Country: US (occurrence: US)
  Receive Date: 20190408
  Receipt Date: 20190619
  Transmission Date: 20190711
  Serious: Yes (Hospitalization)
  Sender: FDA-Public Use
  Company Number: US-ACTELION-A-US2019-187891

PATIENT
  Age: 61 Year
  Sex: Male
  Weight: 60.77 kg

DRUGS (8)
  1. ADEMPAS [Concomitant]
     Active Substance: RIOCIGUAT
  2. ELIQUIS [Concomitant]
     Active Substance: APIXABAN
  3. TYVASO [Concomitant]
     Active Substance: TREPROSTINIL
  4. OPSUMIT [Suspect]
     Active Substance: MACITENTAN
     Indication: PULMONARY ARTERIAL HYPERTENSION
     Dosage: 10 MG, QD
     Route: 048
  5. VELETRI [Suspect]
     Active Substance: EPOPROSTENOL
     Indication: PULMONARY ARTERIAL HYPERTENSION
     Dosage: 16 NG/KG
     Route: 042
  6. VELETRI [Suspect]
     Active Substance: EPOPROSTENOL
     Dosage: 26 NG/KG, PER MIN
     Route: 042
  7. VELETRI [Suspect]
     Active Substance: EPOPROSTENOL
     Dosage: 20 NG/KG
     Route: 042
  8. REMODULIN [Concomitant]
     Active Substance: TREPROSTINIL

REACTIONS (12)
  - Pain in jaw [Unknown]
  - Drug ineffective [Unknown]
  - Fluid retention [Unknown]
  - Weight decreased [Unknown]
  - Oedema [Unknown]
  - Constipation [Unknown]
  - Diuretic therapy [Unknown]
  - Fatigue [Unknown]
  - Abdominal discomfort [Unknown]
  - Asthenia [Unknown]
  - Headache [Unknown]
  - Abdominal distension [Unknown]

NARRATIVE: CASE EVENT DATE: 201903
